FAERS Safety Report 11570052 (Version 1)
Quarter: 2015Q3

REPORT INFORMATION
  Report Type: Spontaneous
  Country: US (occurrence: US)
  Receive Date: 20150929
  Receipt Date: 20150929
  Transmission Date: 20151125
  Serious: No
  Sender: FDA-Public Use
  Company Number: US-PFIZER INC-2015293344

PATIENT
  Age: 66 Year
  Sex: Female

DRUGS (7)
  1. TRAVATAN Z [Suspect]
     Active Substance: TRAVOPROST
     Dosage: UNK
  2. KOMBIGLYZE XR [Suspect]
     Active Substance: METFORMIN HYDROCHLORIDE\SAXAGLIPTIN HYDROCHLORIDE
     Dosage: UNK
  3. LIPITOR [Suspect]
     Active Substance: ATORVASTATIN CALCIUM
     Dosage: UNK
  4. LUMIGAN [Suspect]
     Active Substance: BIMATOPROST
     Dosage: UNK (0.01%)
  5. VITAMIN D [Suspect]
     Active Substance: CHOLECALCIFEROL
     Dosage: UNK
  6. RAMIPRIL. [Suspect]
     Active Substance: RAMIPRIL
     Dosage: UNK
  7. ZIOPTAN [Suspect]
     Active Substance: TAFLUPROST
     Dosage: UNK

REACTIONS (1)
  - Drug hypersensitivity [Unknown]
